FAERS Safety Report 9375891 (Version 1)
Quarter: 2013Q2

REPORT INFORMATION
  Report Type: Spontaneous
  Country: FR (occurrence: FR)
  Receive Date: 20130628
  Receipt Date: 20130628
  Transmission Date: 20140414
  Serious: Yes (Hospitalization, Other)
  Sender: FDA-Public Use
  Company Number: FR-US-EMD SERONO, INC.-7219978

PATIENT
  Age: 31 Year
  Sex: Female

DRUGS (7)
  1. GONAL-F [Suspect]
     Indication: OVULATION INDUCTION
     Route: 058
     Dates: start: 20130320, end: 20130419
  2. OVITRELLE [Suspect]
     Indication: OVULATION INDUCTION
     Route: 058
     Dates: start: 20130415, end: 20130415
  3. LOVENOX /00889602/ [Suspect]
     Indication: PRODUCT USED FOR UNKNOWN INDICATION
     Dosage: 4000 IU/0.4ML
     Route: 058
  4. OMEPRAZOLE [Suspect]
     Indication: PRODUCT USED FOR UNKNOWN INDICATION
     Route: 048
  5. AMOXICILLIN [Suspect]
     Indication: LYMPHANGITIS
     Route: 048
  6. DECAPEPTYL /00486501/ [Suspect]
     Indication: OVULATION INDUCTION
     Route: 058
  7. UTROGESTAN [Concomitant]
     Indication: PRODUCT USED FOR UNKNOWN INDICATION
     Route: 048

REACTIONS (2)
  - Hepatocellular injury [Recovered/Resolved]
  - Ovarian hyperstimulation syndrome [Unknown]
